FAERS Safety Report 4500907-0 (Version None)
Quarter: 2004Q4

REPORT INFORMATION
  Report Type: 
  Country: None (occurrence: None)
  Receive Date: 20041110
  Receipt Date: 20041028
  Transmission Date: 20050328
  Serious: Yes (Hospitalization)
  Sender: FDA-Public Use
  Company Number: F03200400104

PATIENT
  Age: 66 Year
  Sex: Male
  Weight: 73.0291 kg

DRUGS (15)
  1. ELOXATIN [Suspect]
     Indication: RECTAL CANCER STAGE II
     Dosage: 110 MG 1/WEEK- INTRAVENOUS NOS
     Route: 042
     Dates: start: 20041007, end: 20041007
  2. CAPECITABINE [Suspect]
     Indication: RECTAL CANCER STAGE II
     Dosage: 1500 MG QD - ORAL
     Route: 048
     Dates: start: 20040916, end: 20041020
  3. RADIATION THERAPY [Suspect]
     Indication: RECTAL CANCER STAGE II
     Dosage: 180 GGY ONCE DAILY
     Dates: start: 20040916
  4. CLOPIDOGREL BISULFATE [Concomitant]
  5. NICOTINIC ACID [Concomitant]
  6. RAMIPRIL [Concomitant]
  7. NITROGLYCERIN [Concomitant]
  8. FUROSEMIDE [Concomitant]
  9. PANTOPRAZOLE SODIUM [Concomitant]
  10. EZETIMIBE [Concomitant]
  11. CARVEDILOL [Concomitant]
  12. DIPHENOXYLATE [Concomitant]
  13. LORAZEPAM [Concomitant]
  14. HYDROCODONE + ACETAMINOPHEN [Concomitant]
  15. PROCHLORPERAZINE EDISYLATE [Concomitant]

REACTIONS (13)
  - BLOOD ALBUMIN DECREASED [None]
  - BLOOD CALCIUM DECREASED [None]
  - BLOOD GLUCOSE INCREASED [None]
  - DIARRHOEA [None]
  - DIZZINESS [None]
  - EOSINOPHIL COUNT DECREASED [None]
  - HAEMOGLOBIN DECREASED [None]
  - LYMPHOCYTE COUNT INCREASED [None]
  - MONOCYTE COUNT DECREASED [None]
  - ORTHOSTATIC HYPOTENSION [None]
  - PROTEIN TOTAL DECREASED [None]
  - TRANSIENT ISCHAEMIC ATTACK [None]
  - TREATMENT NONCOMPLIANCE [None]
